FAERS Safety Report 5858440-X (Version None)
Quarter: 2008Q3

REPORT INFORMATION
  Report Type: 
  Country: None (occurrence: None)
  Receive Date: 20080826
  Receipt Date: 20080814
  Transmission Date: 20090109
  Serious: Yes (Hospitalization, Disabling, Other)
  Sender: FDA-Public Use
  Company Number: IT-WYE-H05587808

PATIENT
  Age: 53 Year
  Sex: Male

DRUGS (3)
  1. EFFEXOR [Suspect]
     Indication: DEPRESSION
     Dosage: VARYING DOSES ABOVE THE PRESCRIBED AMOUNT WITH PEAKS UP TO 50 TABLETS (OVERDOSE AMOUNT)
     Route: 048
  2. AMLODIPINE [Concomitant]
     Dosage: UNKNOWN
  3. NEBIVOLOL HCL [Concomitant]
     Dosage: UNKNOWN

REACTIONS (16)
  - DIZZINESS [None]
  - DRUG ABUSE [None]
  - DRUG DEPENDENCE [None]
  - DRUG WITHDRAWAL SYNDROME [None]
  - DYSGRAPHIA [None]
  - ELECTROCARDIOGRAM QT PROLONGED [None]
  - FALL [None]
  - FINE MOTOR DELAY [None]
  - HYPOTENSION [None]
  - INTENTIONAL OVERDOSE [None]
  - MUSCULAR WEAKNESS [None]
  - NAUSEA [None]
  - PSYCHOMOTOR HYPERACTIVITY [None]
  - SOMNOLENCE [None]
  - TREMOR [None]
  - WEIGHT DECREASED [None]
